FAERS Safety Report 11640971 (Version 1)
Quarter: 2015Q4

REPORT INFORMATION
  Report Type: Spontaneous
  Country: DE (occurrence: DE)
  Receive Date: 20151019
  Receipt Date: 20151019
  Transmission Date: 20160304
  Serious: Yes (Hospitalization)
  Sender: FDA-Public Use
  Company Number: GXKR2015DE004707

PATIENT

DRUGS (2)
  1. BRILIQUE [Concomitant]
     Active Substance: TICAGRELOR
     Indication: MYOCARDIAL INFARCTION
     Dosage: DAILY DOSE: 180 MG MILLIGRAM(S) EVERY DAY
     Route: 048
     Dates: start: 201503
  2. SIMVASTATIN 1A PHARMA [Suspect]
     Active Substance: SIMVASTATIN
     Indication: MYOCARDIAL INFARCTION
     Dosage: 40 MG, QD
     Route: 048
     Dates: start: 201503

REACTIONS (4)
  - Renal failure [Recovered/Resolved]
  - Chromaturia [Unknown]
  - Muscle disorder [Unknown]
  - Urinary tract disorder [Unknown]

NARRATIVE: CASE EVENT DATE: 201508
